FAERS Safety Report 8960259 (Version 2)
Quarter: 2012Q4

REPORT INFORMATION
  Report Type: 
  Country: NL (occurrence: NL)
  Receive Date: 20121212
  Receipt Date: 20121226
  Transmission Date: 20130627
  Serious: Yes (Hospitalization)
  Sender: FDA-Public Use
  Company Number: NL-PFIZER INC-2012308515

PATIENT
  Age: 56 Year
  Sex: Male
  Weight: 112 kg

DRUGS (2)
  1. GENOTROPIN [Suspect]
     Dosage: 0.2 mg, 1x/day
     Route: 058
  2. DOSTINEX [Concomitant]
     Dosage: 0.5 mg, weekly

REACTIONS (1)
  - Arthropathy [Unknown]
